FAERS Safety Report 20757109 (Version 1)
Quarter: 2022Q2

REPORT INFORMATION
  Report Type: Spontaneous
  Country: US (occurrence: US)
  Receive Date: 20220427
  Receipt Date: 20220427
  Transmission Date: 20220721
  Serious: Yes (Other)
  Sender: FDA-Public Use
  Company Number: US-PFIZER INC-202200569360

PATIENT
  Age: 55 Year
  Sex: Female

DRUGS (6)
  1. VORICONAZOLE [Suspect]
     Active Substance: VORICONAZOLE
     Indication: Fungal infection
     Dosage: 200 MG, 2X/DAY
  2. IXAZOMIB [Concomitant]
     Active Substance: IXAZOMIB
     Indication: Plasma cell myeloma
     Dosage: 2.3 MG, CYCLIC (WEEKLY)
  3. LENALIDOMIDE [Concomitant]
     Active Substance: LENALIDOMIDE
     Indication: Plasma cell myeloma
     Dosage: 10 MG, CYCLIC (DAILY)
  4. MYCOPHENOLIC ACID [Concomitant]
     Active Substance: MYCOPHENOLIC ACID
     Indication: Stem cell transplant
     Dosage: 540 MG, 2X/DAY
  5. PREDNISONE [Concomitant]
     Active Substance: PREDNISONE
     Indication: Stem cell transplant
     Dosage: 5 MG, DAILY
  6. TACROLIMUS [Concomitant]
     Active Substance: TACROLIMUS
     Indication: Stem cell transplant
     Dosage: 11 MG, 2X/DAY

REACTIONS (1)
  - Toxicity to various agents [Unknown]
